FAERS Safety Report 6519624-0 (Version None)
Quarter: 2009Q4

REPORT INFORMATION
  Report Type: 
  Country: None (occurrence: None)
  Receive Date: 20091228
  Receipt Date: 20091217
  Transmission Date: 20100525
  Serious: Yes (Other)
  Sender: FDA-Public Use
  Company Number: GB-BAXTER-2009BH019657

PATIENT
  Age: 67 Year
  Sex: Male

DRUGS (6)
  1. HEPARIN [Suspect]
     Indication: MYOCARDIAL INFARCTION
     Route: 042
  2. ACETYLSALICYLIC ACID SRT [Suspect]
     Indication: MYOCARDIAL INFARCTION
     Route: 048
  3. ENOXAPARIN SODIUM [Suspect]
     Indication: MYOCARDIAL INFARCTION
     Route: 058
  4. TENECTEPLASE [Suspect]
     Indication: MYOCARDIAL INFARCTION
     Route: 040
  5. DOXAZOSIN MESYLATE [Concomitant]
     Indication: DRUG USE FOR UNKNOWN INDICATION
     Route: 065
  6. LOSARTAN [Concomitant]
     Indication: DRUG USE FOR UNKNOWN INDICATION
     Route: 065

REACTIONS (1)
  - OESOPHAGEAL OBSTRUCTION [None]
